FAERS Safety Report 9548242 (Version 1)
Quarter: 2013Q2

REPORT INFORMATION
  Report Type: Spontaneous
  Country: US (occurrence: None)
  Receive Date: 20130524
  Receipt Date: 20130524
  Transmission Date: 20140414
  Serious: No
  Sender: FDA-Public Use
  Company Number: PHEH2013US004911

PATIENT
  Age: 47 Year
  Sex: Female
  Weight: 65.8 kg

DRUGS (4)
  1. GILENYA (FINGOLIMOD) CAPSULE, 0.5MG [Suspect]
     Route: 048
  2. ALBUTEROL (SALBUTAMOL) [Concomitant]
  3. TOPAMAX (TOPIRAMATE) [Concomitant]
  4. REQUIP (ROPINIROLE HYDROCHLORIDE) [Concomitant]

REACTIONS (1)
  - Pollakiuria [None]
